FAERS Safety Report 9437932 (Version 1)
Quarter: 2013Q3

REPORT INFORMATION
  Report Type: Spontaneous
  Country: US (occurrence: US)
  Receive Date: 20130802
  Receipt Date: 20130802
  Transmission Date: 20140515
  Serious: No
  Sender: FDA-Public Use
  Company Number: US-BRISTOL-MYERS SQUIBB COMPANY-18895656

PATIENT
  Age: 67 Year
  Sex: Female
  Weight: 130 kg

DRUGS (16)
  1. COUMADIN [Suspect]
     Indication: PULMONARY EMBOLISM
     Dates: start: 201104
  2. CYMBALTA [Concomitant]
     Indication: NEUROPATHY PERIPHERAL
     Route: 048
  3. CYMBALTA [Concomitant]
     Indication: DEPRESSION
     Route: 048
  4. BUSPAR [Concomitant]
     Indication: FEELING OF RELAXATION
     Route: 048
  5. PREVACID [Concomitant]
     Indication: OESOPHAGEAL ULCER
     Route: 048
  6. PREVACID [Concomitant]
     Indication: GASTROOESOPHAGEAL REFLUX DISEASE
     Route: 048
  7. INDERAL [Concomitant]
     Indication: HEADACHE
     Route: 048
     Dates: start: 2011
  8. INDERAL [Concomitant]
     Indication: MIGRAINE PROPHYLAXIS
     Route: 048
     Dates: start: 2011
  9. COQ10 [Concomitant]
     Indication: MIGRAINE PROPHYLAXIS
     Route: 048
     Dates: start: 2011
  10. COQ10 [Concomitant]
     Indication: HEADACHE
     Route: 048
     Dates: start: 2011
  11. MAGNESIUM [Concomitant]
     Indication: MIGRAINE PROPHYLAXIS
     Route: 048
     Dates: start: 2011
  12. MAGNESIUM [Concomitant]
     Indication: HEADACHE
     Route: 048
     Dates: start: 2011
  13. RECLAST [Concomitant]
     Indication: OSTEOPOROSIS
  14. MULTIVITAMIN [Concomitant]
  15. VITAMIN B12 [Concomitant]
  16. IMITREX [Concomitant]
     Indication: MIGRAINE
     Dosage: TABLET.
     Route: 048

REACTIONS (3)
  - Headache [Unknown]
  - Nausea [Unknown]
  - Migraine [Unknown]
